FAERS Safety Report 21196029 (Version 2)
Quarter: 2022Q3

REPORT INFORMATION
  Report Type: Report from Study
  Country: EG (occurrence: EG)
  Receive Date: 20220810
  Receipt Date: 20220812
  Transmission Date: 20221026
  Serious: Yes (Other)
  Sender: FDA-Public Use
  Company Number: EG-NOVARTISPH-NVSC2022EG177872

PATIENT
  Age: 4 Year
  Sex: Male

DRUGS (6)
  1. OMNITROPE [Suspect]
     Active Substance: SOMATROPIN
     Indication: Growth hormone deficiency
     Dosage: 0.3 MG, QD (DRUG STOPPED AT 9 MONTHS AGO APPROXIMATELY AT DEC 2021)
     Route: 058
     Dates: start: 20181009, end: 2021
  2. LEVOCARNITINE [Concomitant]
     Active Substance: LEVOCARNITINE
     Indication: Supplementation therapy
     Dosage: 10 DRP, QD (STOPPED 3 YEARS AGO)
     Route: 048
     Dates: start: 20181009, end: 2019
  3. EFALEX [Concomitant]
     Indication: Supplementation therapy
     Dosage: 1 TABLESPOONFUL, QD (STOPPED 3 YEARS AGO)
     Route: 048
     Dates: start: 20181009, end: 2019
  4. OSTEOCARE [Concomitant]
     Active Substance: CALCIUM\CHOLECALCIFEROL\MAGNESIUM\ZINC
     Indication: Supplementation therapy
     Dosage: 1 TABLESPOONFUL, QD (STOPPED 3 YEARS AGO)
     Route: 048
     Dates: start: 20181009, end: 2019
  5. HAEMOJET [Concomitant]
     Indication: Supplementation therapy
     Dosage: 1 TABLESPOONFUL, QD (STOPPED 3 YEARS AGO)
     Route: 048
     Dates: start: 20181009, end: 2019
  6. VITAMINS [Concomitant]
     Active Substance: VITAMINS
     Indication: Supplementation therapy
     Dosage: 2 MEASUREMENT ON A GLASS OF WATER/DAY, QD (STOPPED 9 MONTHS AGO) (FORMULATION: MILK POWDER)
     Route: 065
     Dates: start: 20181009

REACTIONS (7)
  - Weight increased [Not Recovered/Not Resolved]
  - Movement disorder [Not Recovered/Not Resolved]
  - Anger [Not Recovered/Not Resolved]
  - Sleep disorder [Not Recovered/Not Resolved]
  - Dysphemia [Not Recovered/Not Resolved]
  - Condition aggravated [Not Recovered/Not Resolved]
  - Rash [Not Recovered/Not Resolved]

NARRATIVE: CASE EVENT DATE: 20211201
